FAERS Safety Report 5506616-3 (Version None)
Quarter: 2007Q4

REPORT INFORMATION
  Report Type: 
  Country: None (occurrence: None)
  Receive Date: 20071101
  Receipt Date: 20071022
  Transmission Date: 20080405
  Serious: Yes (Other)
  Sender: FDA-Public Use
  Company Number: CC2007-045

PATIENT
  Sex: Male

DRUGS (1)
  1. ATROPINE SULFATE [Suspect]

REACTIONS (5)
  - DEVICE BREAKAGE [None]
  - HYPOAESTHESIA [None]
  - LIMB INJURY [None]
  - PHARMACEUTICAL PRODUCT COMPLAINT [None]
  - SKELETAL INJURY [None]
